FAERS Safety Report 11923038 (Version 1)
Quarter: 2016Q1

REPORT INFORMATION
  Report Type: Spontaneous
  Country: US (occurrence: US)
  Receive Date: 20160117
  Receipt Date: 20160117
  Transmission Date: 20160526
  Serious: No
  Sender: FDA-Public Use
  Company Number: US-TEVA-623216USA

PATIENT
  Age: 38 Year
  Sex: Female

DRUGS (5)
  1. MULTIVITAMIN [Concomitant]
     Active Substance: VITAMINS
     Route: 065
  2. COPAXONE [Suspect]
     Active Substance: GLATIRAMER ACETATE
     Indication: MULTIPLE SCLEROSIS
     Route: 058
  3. VESICARE [Concomitant]
     Active Substance: SOLIFENACIN SUCCINATE
     Route: 065
  4. VITAMIN D [Concomitant]
     Active Substance: CHOLECALCIFEROL
     Route: 065
  5. BIOTIN [Concomitant]
     Active Substance: BIOTIN
     Route: 065

REACTIONS (4)
  - Vomiting [Unknown]
  - Flushing [Unknown]
  - Chills [Unknown]
  - Abdominal pain [Unknown]

NARRATIVE: CASE EVENT DATE: 20151226
